FAERS Safety Report 7939630-9 (Version None)
Quarter: 2011Q4

REPORT INFORMATION
  Report Type: 
  Country: None (occurrence: None)
  Receive Date: 20111125
  Receipt Date: 20111114
  Transmission Date: 20120403
  Serious: Yes (Hospitalization, Other)
  Sender: FDA-Public Use
  Company Number: PHHY2011VE17125

PATIENT
  Sex: Female

DRUGS (3)
  1. CALCIBON D [Concomitant]
     Dosage: UNK UKN, UNK
  2. PROFENIC [Concomitant]
  3. ZOLEDRONOC ACID [Suspect]
     Indication: OSTEOPOROSIS
     Dosage: 5 MG, UNK
     Route: 042
     Dates: start: 20100819

REACTIONS (5)
  - BONE NEOPLASM MALIGNANT [None]
  - BENIGN BONE NEOPLASM [None]
  - OSTEOPENIA [None]
  - BONE PAIN [None]
  - BREAST CANCER [None]
